FAERS Safety Report 12690962 (Version 1)
Quarter: 2016Q3

REPORT INFORMATION
  Report Type: Spontaneous
  Country: DE (occurrence: DE)
  Receive Date: 20160826
  Receipt Date: 20160826
  Transmission Date: 20161109
  Serious: Yes (Other)
  Sender: FDA-Public Use
  Company Number: ALCN2016DE005794

PATIENT
  Sex: Male
  Weight: 75 kg

DRUGS (1)
  1. FLUORESCEIN SODIUM. [Suspect]
     Active Substance: FLUORESCEIN SODIUM
     Indication: ANGIOGRAM RETINA
     Dosage: 5 ML, ONCE/SINGLE
     Route: 042
     Dates: start: 20160811, end: 20160811

REACTIONS (6)
  - Acute respiratory distress syndrome [Unknown]
  - Disseminated intravascular coagulation [Unknown]
  - Anaphylactic shock [Unknown]
  - Renal failure [Unknown]
  - Circulatory collapse [Unknown]
  - Multiple organ dysfunction syndrome [Unknown]
